FAERS Safety Report 5750162-9 (Version None)
Quarter: 2008Q2

REPORT INFORMATION
  Report Type: 
  Country: None (occurrence: None)
  Receive Date: 20080527
  Receipt Date: 20080515
  Transmission Date: 20081010
  Serious: Yes (Other)
  Sender: FDA-Public Use
  Company Number: US-PFIZER INC-2008042319

PATIENT
  Sex: Female

DRUGS (5)
  1. LYRICA [Suspect]
     Indication: DIABETIC NEUROPATHY
  2. NEURONTIN [Suspect]
     Indication: DIABETIC NEUROPATHY
  3. CYMBALTA [Concomitant]
  4. AMITRIPTYLINE HCL [Concomitant]
  5. CAPSAICIN [Concomitant]
     Route: 061

REACTIONS (3)
  - DRUG HYPERSENSITIVITY [None]
  - JOINT STIFFNESS [None]
  - PARALYSIS [None]
